FAERS Safety Report 19232026 (Version 2)
Quarter: 2021Q2

REPORT INFORMATION
  Report Type: Spontaneous
  Country: US (occurrence: US)
  Receive Date: 20210507
  Receipt Date: 20210526
  Transmission Date: 20210717
  Serious: Yes (Hospitalization)
  Sender: FDA-Public Use
  Company Number: US-MYLANLABS-2021M1026912

PATIENT
  Age: 63 Year
  Sex: Male

DRUGS (9)
  1. IMMUNOGLOBULIN                     /07494701/ [Concomitant]
     Active Substance: IMMUNE GLOBULIN NOS
     Indication: PRODUCT USED FOR UNKNOWN INDICATION
     Route: 065
  2. PREDNISONE. [Suspect]
     Active Substance: PREDNISONE
     Indication: IMMUNOSUPPRESSANT DRUG THERAPY
     Dosage: 30 MILLIGRAM TAPERING FROM 30 MG AT HOSPITAL DISCHARGE..
     Route: 048
  3. ANTITHYMOCYTE IMMUNOGLOBULIN [Suspect]
     Active Substance: THYMOCYTE IMMUNE GLOBULIN NOS
     Indication: IMMUNOSUPPRESSANT DRUG THERAPY
     Dosage: INDUCTION THERAPY
     Route: 065
  4. TACROLIMUS. [Suspect]
     Active Substance: TACROLIMUS
     Dosage: 12?HOUR TACROLIMUS TROUGH TARGET WAS REDUCED TO A LOWER GOAL LEVEL OF 4?6 NG/ML.
     Route: 065
  5. MITOMYCIN. [Concomitant]
     Active Substance: MITOMYCIN
     Indication: TRANSITIONAL CELL CARCINOMA
     Route: 043
  6. MYCOPHENOLATE MOFETIL. [Suspect]
     Active Substance: MYCOPHENOLATE MOFETIL
     Indication: IMMUNOSUPPRESSANT DRUG THERAPY
     Dosage: LOW?DOSE MYCOPHENOLATE (500MG OF MYCOPHENOLATE MOFETIL EQUIVALENTS/DAY)
     Route: 048
     Dates: start: 2012, end: 201309
  7. PREDNISONE. [Suspect]
     Active Substance: PREDNISONE
     Dosage: 10 MILLIGRAM TAPERING FROM 30 MG AT HOSPITAL DISCHARGE TO 10 MG...
     Route: 048
  8. TACROLIMUS. [Suspect]
     Active Substance: TACROLIMUS
     Indication: IMMUNOSUPPRESSANT DRUG THERAPY
     Dosage: TARGETING GOAL LEVELS OF 8?12 NG/ML
     Route: 065
  9. MYCOPHENOLATE MOFETIL. [Suspect]
     Active Substance: MYCOPHENOLATE MOFETIL
     Indication: IMMUNOSUPPRESSANT DRUG THERAPY
     Dosage: 720 MILLIGRAM, BID
     Route: 048
     Dates: end: 2011

REACTIONS (3)
  - BK virus infection [Not Recovered/Not Resolved]
  - Polyomavirus-associated nephropathy [Recovered/Resolved]
  - Transitional cell carcinoma [Not Recovered/Not Resolved]

NARRATIVE: CASE EVENT DATE: 201108
